FAERS Safety Report 9670756 (Version 5)
Quarter: 2014Q2

REPORT INFORMATION
  Report Type: Spontaneous
  Country: JP (occurrence: JP)
  Receive Date: 20131106
  Receipt Date: 20140417
  Transmission Date: 20141212
  Serious: Yes (Hospitalization)
  Sender: FDA-Public Use
  Company Number: JP-JNJFOC-20131019421

PATIENT
  Age: 82 Year
  Sex: Male
  Weight: 39 kg

DRUGS (20)
  1. REMICADE [Suspect]
     Indication: CROHN^S DISEASE
     Route: 042
     Dates: start: 20080728
  2. REMICADE [Suspect]
     Indication: CROHN^S DISEASE
     Route: 042
     Dates: start: 20090109
  3. REMICADE [Suspect]
     Indication: CROHN^S DISEASE
     Route: 042
     Dates: start: 20080714
  4. REMICADE [Suspect]
     Indication: CROHN^S DISEASE
     Route: 042
     Dates: start: 20110228
  5. REMICADE [Suspect]
     Indication: BEHCET^S SYNDROME
     Route: 042
     Dates: start: 20080714
  6. REMICADE [Suspect]
     Indication: BEHCET^S SYNDROME
     Route: 042
     Dates: start: 20090109
  7. REMICADE [Suspect]
     Indication: BEHCET^S SYNDROME
     Route: 042
     Dates: start: 20110228
  8. REMICADE [Suspect]
     Indication: BEHCET^S SYNDROME
     Route: 042
     Dates: start: 20080728
  9. ADALIMUMAB [Suspect]
     Indication: CROHN^S DISEASE
     Route: 065
  10. ADALIMUMAB [Suspect]
     Indication: BEHCET^S SYNDROME
     Route: 065
  11. ISONIAZID [Suspect]
     Indication: ANTIBIOTIC PROPHYLAXIS
     Route: 048
     Dates: start: 200806, end: 200905
  12. ALFAROL [Concomitant]
     Dosage: 1 MCG AFTER BREAKFAST
     Route: 048
  13. FLIVAS [Concomitant]
     Dosage: AFTER BREAKFAST
     Route: 048
  14. EVIPROSTAT [Concomitant]
     Dosage: 1 TABLET AFTER BREAKFAST, LUNCH AND DINNER
     Route: 048
  15. MIYA BM [Concomitant]
     Dosage: AFTER BREAKFAST , LUNCH AND DINNER. TOTAL DOSE: 3 GM
     Route: 048
  16. FOIPAN [Concomitant]
     Dosage: AFTER BREAK FAST, LUNCH AND DINNER.??TOTAL DOSE: 300MG
     Route: 048
  17. SALAZOPYRIN [Concomitant]
     Dosage: AFTER BREAK FAST, LUNCH AND DINNER.??TOTAL DOSE: 3000MG.
     Route: 048
  18. GASMOTIN [Concomitant]
     Dosage: AFTER BREAK FAST, LUNCH AND DINNER. TOTAL DOSE: 15MG.
     Route: 048
  19. OMEPRAL [Concomitant]
     Dosage: AFTER DINNER.
     Route: 048
  20. RIKKUNSHI-TO [Concomitant]
     Dosage: AFTER BREAK FAST, LUNCH AND DINNER.??TOTAL DINNER: 7.5MG.
     Route: 065

REACTIONS (2)
  - Mycobacterium avium complex infection [Recovering/Resolving]
  - Off label use [Unknown]
